FAERS Safety Report 5711344-5 (Version None)
Quarter: 2008Q2

REPORT INFORMATION
  Report Type: 
  Country: None (occurrence: None)
  Receive Date: 20080421
  Receipt Date: 20080411
  Transmission Date: 20081010
  Serious: Yes (Death)
  Sender: FDA-Public Use
  Company Number: A0723737A

PATIENT
  Age: 60 Year
  Sex: Male
  Weight: 98.4 kg

DRUGS (2)
  1. FLOLAN [Suspect]
     Dosage: 4.5ML24 SEE DOSAGE TEXT
     Route: 042
     Dates: start: 20071213, end: 20080409
  2. FLOLAN [Suspect]
     Route: 042

REACTIONS (1)
  - DEATH [None]
